FAERS Safety Report 8935767 (Version 1)
Quarter: 2012Q4

REPORT INFORMATION
  Report Type: 
  Country: BR (occurrence: BR)
  Receive Date: 20121130
  Receipt Date: 20121130
  Transmission Date: 20130627
  Serious: Yes (Other)
  Sender: FDA-Public Use
  Company Number: BR-BRISTOL-MYERS SQUIBB COMPANY-17149667

PATIENT
  Age: 86 Year
  Sex: Female

DRUGS (2)
  1. APROVEL TABS [Suspect]
     Dosage: 24-Oct-2012
  2. SELOZOK [Concomitant]

REACTIONS (1)
  - Diverticulitis [Recovered/Resolved]
